FAERS Safety Report 4681496-7 (Version None)
Quarter: 2005Q2

REPORT INFORMATION
  Report Type: 
  Country: None (occurrence: None)
  Receive Date: 20050602
  Receipt Date: 20050527
  Transmission Date: 20051028
  Serious: Yes (Death)
  Sender: FDA-Public Use
  Company Number: 2004-03-0788

PATIENT
  Age: 11 Week

DRUGS (3)
  1. PEG-INTRON [Suspect]
     Indication: HEPATITIS C
     Dosage: 60 MCG QWK; SUBCUTANEOUS
     Route: 058
     Dates: start: 20030801, end: 20031119
  2. REBETOL [Suspect]
     Indication: HEPATITIS C
     Dosage: 1000 MG QD; ORAL
     Route: 048
     Dates: start: 20030801, end: 20031119
  3. PREVACID [Concomitant]

REACTIONS (2)
  - DRUG EXPOSURE DURING PREGNANCY [None]
  - SUDDEN INFANT DEATH SYNDROME [None]
